FAERS Safety Report 23004458 (Version 2)
Quarter: 2023Q4

REPORT INFORMATION
  Report Type: Spontaneous
  Country: BE (occurrence: BE)
  Receive Date: 20230928
  Receipt Date: 20231009
  Transmission Date: 20240110
  Serious: Yes (Other)
  Sender: FDA-Public Use
  Company Number: BE-TEVA-2023-BE-2929899

PATIENT
  Age: 47 Year
  Sex: Female

DRUGS (9)
  1. CARBOPLATIN [Suspect]
     Active Substance: CARBOPLATIN
     Indication: Rectal cancer
     Route: 065
  2. CARBOPLATIN [Suspect]
     Active Substance: CARBOPLATIN
     Indication: Metastases to lung
  3. PACLITAXEL [Suspect]
     Active Substance: PACLITAXEL
     Indication: Rectal cancer
     Route: 065
  4. PACLITAXEL [Suspect]
     Active Substance: PACLITAXEL
     Indication: Metastases to lung
  5. RETIFANLIMAB [Suspect]
     Active Substance: RETIFANLIMAB
     Indication: Rectal cancer
     Route: 042
  6. RETIFANLIMAB [Suspect]
     Active Substance: RETIFANLIMAB
     Indication: Metastases to lung
  7. DULOXETINE [Concomitant]
     Active Substance: DULOXETINE
     Indication: Product used for unknown indication
     Route: 065
  8. ZOLPIDEM [Concomitant]
     Active Substance: ZOLPIDEM TARTRATE
     Indication: Product used for unknown indication
     Route: 065
  9. LORAZEPAM [Concomitant]
     Active Substance: LORAZEPAM
     Indication: Product used for unknown indication
     Route: 065

REACTIONS (3)
  - Lichen planus [Recovering/Resolving]
  - Hypothyroidism [Unknown]
  - Drug ineffective [Unknown]
